FAERS Safety Report 10467593 (Version 3)
Quarter: 2015Q1

REPORT INFORMATION
  Report Type: Spontaneous
  Country: US (occurrence: US)
  Receive Date: 20140922
  Receipt Date: 20150319
  Transmission Date: 20150720
  Serious: Yes (Hospitalization, Other)
  Sender: FDA-Public Use
  Company Number: US-GLAXOSMITHKLINE-A1089236A

PATIENT
  Age: 58 Year
  Sex: Female

DRUGS (8)
  1. LAMICTAL [Suspect]
     Active Substance: LAMOTRIGINE
     Indication: MOOD SWINGS
     Dosage: 200 MG, QD
     Route: 048
     Dates: start: 2013
  2. ADVAIR HFA [Suspect]
     Active Substance: FLUTICASONE PROPIONATE\SALMETEROL XINAFOATE
     Indication: ASTHMA
     Dosage: 1 PUFF(S), QD
     Route: 055
     Dates: start: 2012
  3. VENTOLIN [Suspect]
     Active Substance: ALBUTEROL SULFATE
     Indication: ASTHMA
     Dosage: UNK, PRN
     Route: 055
     Dates: start: 2005
  4. DIFLUCAN [Concomitant]
     Active Substance: FLUCONAZOLE
  5. GABAPENTIN. [Concomitant]
     Active Substance: GABAPENTIN
  6. ADVAIR HFA [Suspect]
     Active Substance: FLUTICASONE PROPIONATE\SALMETEROL XINAFOATE
     Dosage: 2 PUFF(S), BID
     Route: 055
  7. AMOXICILLIN. [Concomitant]
     Active Substance: AMOXICILLIN
  8. ADVAIR HFA [Suspect]
     Active Substance: FLUTICASONE PROPIONATE\SALMETEROL XINAFOATE
     Dosage: 1 PUFF(S), QD
     Route: 055

REACTIONS (16)
  - Hip arthroplasty [Recovered/Resolved]
  - Pain [Not Recovered/Not Resolved]
  - Drug administration error [Unknown]
  - Drug ineffective [Recovered/Resolved]
  - Arthropathy [Unknown]
  - Choking [Recovered/Resolved]
  - Fall [Recovered/Resolved]
  - Wound dehiscence [Unknown]
  - Fungal infection [Unknown]
  - Osteoarthritis [Unknown]
  - Erythema [Unknown]
  - Arthralgia [Not Recovered/Not Resolved]
  - Haemorrhage [Unknown]
  - Asthma [Recovered/Resolved]
  - Environmental exposure [Unknown]
  - Ankle fracture [Unknown]

NARRATIVE: CASE EVENT DATE: 20130520
